FAERS Safety Report 8957105 (Version 1)
Quarter: 2012Q4

REPORT INFORMATION
  Report Type: Report from Study
  Country: FR (occurrence: FR)
  Receive Date: 20121211
  Receipt Date: 20121211
  Transmission Date: 20130627
  Serious: Yes (Death, Life-Threatening, Hospitalization)
  Sender: FDA-Public Use
  Company Number: FR-ROCHE-538243

PATIENT
  Sex: Male
  Weight: 86 kg

DRUGS (6)
  1. RITUXIMAB [Suspect]
     Indication: RHEUMATOID ARTHRITIS
     Dosage: FORM: INJECTABLE SOLUTION
DOSING REGIMEN: 1 GRAM X 2.
     Route: 042
     Dates: start: 20070531, end: 20070614
  2. RIVOTRIL [Concomitant]
     Route: 048
  3. XATRAL [Concomitant]
     Indication: PROSTATIC ADENOMA
     Dosage: DOSAGE REGIMEN: 10.
     Route: 048
  4. FOSAMAX [Concomitant]
     Indication: OSTEOPOROSIS
     Route: 048
  5. OMEPRAZOLE [Concomitant]
     Route: 048
  6. CORTANCYL [Concomitant]
     Indication: RHEUMATOID ARTHRITIS
     Route: 048

REACTIONS (1)
  - Adenocarcinoma pancreas [Fatal]
